FAERS Safety Report 24691041 (Version 1)
Quarter: 2024Q4

REPORT INFORMATION
  Report Type: Spontaneous
  Country: US (occurrence: US)
  Receive Date: 20241203
  Receipt Date: 20241203
  Transmission Date: 20250115
  Serious: Yes (Other)
  Sender: PIRAMAL
  Company Number: US-PCCINC-2024-PPL-000884

PATIENT

DRUGS (2)
  1. GABLOFEN [Suspect]
     Active Substance: BACLOFEN
     Indication: Product used for unknown indication
     Dosage: 239.812 MICROGRAM PER DAY
     Route: 037
  2. BACLOFEN [Suspect]
     Active Substance: BACLOFEN
     Indication: Product used for unknown indication
     Dosage: ENTERAL BACLOFEN

REACTIONS (2)
  - Cerebrospinal fluid leakage [Unknown]
  - Vomiting [Unknown]
